FAERS Safety Report 14753504 (Version 2)
Quarter: 2018Q2

REPORT INFORMATION
  Report Type: Report from Study
  Country: MX (occurrence: MX)
  Receive Date: 20180412
  Receipt Date: 20180509
  Transmission Date: 20180711
  Serious: Yes (Other)
  Sender: FDA-Public Use
  Company Number: PHHY2018MX060746

PATIENT
  Age: 77 Year
  Sex: Female
  Weight: 61 kg

DRUGS (6)
  1. METICEL [Concomitant]
     Indication: GLAUCOMA
     Dosage: 1 DF, Q6H, 10 YEARS AGO
     Route: 065
  2. TRAVATAN [Suspect]
     Active Substance: TRAVOPROST
     Indication: GLAUCOMA
     Dosage: 1 GTT, BID (1 DROP IN EACH EYE)
     Route: 047
  3. SOPHIXIN [Concomitant]
     Indication: GLAUCOMA
     Dosage: 1 GTT, QHS
     Route: 047
  4. POLIXIN [Concomitant]
     Indication: GLAUCOMA
     Dosage: 1 DF, 10 YEARS AGO
     Route: 065
  5. HYPROMELLOSE [Concomitant]
     Active Substance: HYPROMELLOSES
     Indication: GLAUCOMA
     Dosage: 1 DF, QN, APPROXIMATELY 10 YEARS AGO
     Route: 065
  6. LEVOTHYROXINE. [Concomitant]
     Active Substance: LEVOTHYROXINE
     Indication: THYROID DISORDER
     Dosage: 1 DF, QD
     Route: 048

REACTIONS (4)
  - Vision blurred [Unknown]
  - Drug prescribing error [Unknown]
  - Food poisoning [Recovered/Resolved]
  - Cataract [Unknown]

NARRATIVE: CASE EVENT DATE: 20180329
